FAERS Safety Report 19076435 (Version 3)
Quarter: 2022Q1

REPORT INFORMATION
  Report Type: Report from Study
  Country: JP (occurrence: JP)
  Receive Date: 20210331
  Receipt Date: 20220106
  Transmission Date: 20220423
  Serious: Yes (Life-Threatening, Hospitalization, Other)
  Sender: FDA-Public Use
  Company Number: JP-JNJFOC-A-CH2013-85480

PATIENT
  Age: 35 Year
  Sex: Male

DRUGS (53)
  1. MIGLUSTAT [Interacting]
     Active Substance: MIGLUSTAT
     Indication: Niemann-Pick disease
     Dosage: 200MG Q.D. - 200MG Q.D. - 100MG Q.D.
     Route: 048
     Dates: start: 20130215, end: 20130228
  2. MIGLUSTAT [Interacting]
     Active Substance: MIGLUSTAT
     Dosage: UNK MG, UNK
     Route: 048
     Dates: start: 20130118, end: 20130201
  3. MIGLUSTAT [Interacting]
     Active Substance: MIGLUSTAT
     Dosage: 200MG Q.D. - 100MG Q.D. - 100MG Q.D.
     Route: 048
     Dates: start: 20130201, end: 20130214
  4. MIGLUSTAT [Interacting]
     Active Substance: MIGLUSTAT
     Dosage: 100 MG, TID
     Route: 048
     Dates: start: 20130302, end: 20130429
  5. MIGLUSTAT [Interacting]
     Active Substance: MIGLUSTAT
     Dosage: 200MG Q.D. - 100MG Q.D. - 100MG Q.D.
     Route: 048
     Dates: start: 20130430, end: 20131009
  6. MIGLUSTAT [Interacting]
     Active Substance: MIGLUSTAT
     Dosage: 100 MG, TID
     Route: 048
     Dates: start: 20131009, end: 20141023
  7. MIGLUSTAT [Interacting]
     Active Substance: MIGLUSTAT
     Dosage: 100 MG, TID
     Route: 048
     Dates: start: 20141105, end: 20141109
  8. MIGLUSTAT [Interacting]
     Active Substance: MIGLUSTAT
     Dosage: 100 MG, TID
     Route: 048
     Dates: start: 20141215, end: 20150622
  9. MIGLUSTAT [Interacting]
     Active Substance: MIGLUSTAT
     Dosage: 100MG Q.D. - 100MG Q.D. - 200MG Q.D.
     Route: 048
     Dates: start: 20150623, end: 20150623
  10. MIGLUSTAT [Interacting]
     Active Substance: MIGLUSTAT
     Dosage: 100MG Q.D. - 200MG Q.D. - 200MG Q.D.
     Route: 048
     Dates: start: 20150724, end: 20150917
  11. MIGLUSTAT [Interacting]
     Active Substance: MIGLUSTAT
     Dosage: 200 MG, TID
     Route: 048
     Dates: start: 20150918, end: 20210730
  12. ZOSYN [Interacting]
     Active Substance: PIPERACILLIN SODIUM\TAZOBACTAM SODIUM
     Indication: Pneumonia
     Route: 042
     Dates: start: 20140315, end: 20140323
  13. ZOSYN [Interacting]
     Active Substance: PIPERACILLIN SODIUM\TAZOBACTAM SODIUM
     Route: 042
     Dates: start: 20140520, end: 20140529
  14. ZOSYN [Interacting]
     Active Substance: PIPERACILLIN SODIUM\TAZOBACTAM SODIUM
     Route: 042
     Dates: start: 20140907, end: 20140929
  15. ZOSYN [Interacting]
     Active Substance: PIPERACILLIN SODIUM\TAZOBACTAM SODIUM
     Route: 042
     Dates: start: 20140930, end: 20141008
  16. ZOSYN [Interacting]
     Active Substance: PIPERACILLIN SODIUM\TAZOBACTAM SODIUM
     Dosage: 18 G, UNK
     Route: 042
     Dates: start: 20141020, end: 20141025
  17. MEROPENEM [Interacting]
     Active Substance: MEROPENEM
     Indication: Pneumonia
     Route: 042
     Dates: start: 20141025, end: 20141104
  18. MEROPENEM [Interacting]
     Active Substance: MEROPENEM
     Route: 042
     Dates: start: 20141109, end: 20141118
  19. MEROPENEM [Interacting]
     Active Substance: MEROPENEM
     Dosage: DOSE UNKNOWN
     Route: 042
     Dates: start: 20140520, end: 20140520
  20. MEROPENEM [Interacting]
     Active Substance: MEROPENEM
     Dosage: DOSE UNKNOWN
     Route: 042
     Dates: start: 20140907, end: 20140907
  21. MEROPENEM [Interacting]
     Active Substance: MEROPENEM
     Dosage: DOSE UNKNOWN
     Route: 042
     Dates: start: 20140930, end: 20140930
  22. MEROPENEM [Interacting]
     Active Substance: MEROPENEM
     Dosage: DOSE UNKNOWN
     Route: 042
     Dates: start: 20141020, end: 20141020
  23. MEROPENEM [Interacting]
     Active Substance: MEROPENEM
     Route: 042
     Dates: start: 20150221, end: 20150301
  24. MEROPENEM [Interacting]
     Active Substance: MEROPENEM
     Route: 042
     Dates: start: 20150406, end: 20150413
  25. AMBROXOL HYDROCHLORIDE [Concomitant]
     Active Substance: AMBROXOL HYDROCHLORIDE
     Indication: Sputum retention
     Route: 050
     Dates: start: 20141219
  26. AMBROXOL HYDROCHLORIDE [Concomitant]
     Active Substance: AMBROXOL HYDROCHLORIDE
     Route: 050
     Dates: start: 20141219
  27. AMBROXOL HYDROCHLORIDE [Concomitant]
     Active Substance: AMBROXOL HYDROCHLORIDE
     Route: 050
     Dates: end: 20210730
  28. CARBOCYSTEINE [Concomitant]
     Active Substance: CARBOCYSTEINE
     Indication: Sputum retention
     Route: 050
  29. DIETARY SUPPLEMENT\PROBIOTICS [Concomitant]
     Active Substance: DIETARY SUPPLEMENT\PROBIOTICS
     Indication: Diarrhoea
     Route: 050
  30. LOPERAMIDE HYDROCHLORIDE [Concomitant]
     Active Substance: LOPERAMIDE HYDROCHLORIDE
     Indication: Prophylaxis against diarrhoea
     Route: 050
     Dates: start: 20130118
  31. TRIENTINE [Concomitant]
     Active Substance: TRIENTINE
     Indication: Hepato-lenticular degeneration
     Dosage: 700MG-500MG
     Route: 050
     Dates: start: 20140907, end: 20140907
  32. CEFCAPENE PIVOXIL [Concomitant]
     Active Substance: CEFCAPENE PIVOXIL
     Indication: Pyrexia
     Route: 050
     Dates: start: 20131009, end: 20131016
  33. CLONAZEPAM [Concomitant]
     Active Substance: CLONAZEPAM
     Indication: Dystonia
     Dosage: 0.3-0.5MG
     Route: 050
  34. CLONAZEPAM [Concomitant]
     Active Substance: CLONAZEPAM
     Route: 050
  35. FAMOTIDINE [Concomitant]
     Active Substance: FAMOTIDINE
  36. MOSAPRIDE [Concomitant]
     Active Substance: MOSAPRIDE
     Indication: Gastrointestinal motility disorder
     Route: 050
     Dates: start: 20140316, end: 20150909
  37. MOSAPRIDE [Concomitant]
     Active Substance: MOSAPRIDE
     Route: 050
     Dates: start: 20150910
  38. DOMPERIDONE [Concomitant]
     Active Substance: DOMPERIDONE
     Indication: Nausea
     Route: 050
     Dates: start: 20140606, end: 20140710
  39. LEVOCETIRIZINE [Concomitant]
     Active Substance: LEVOCETIRIZINE
  40. METRONIDAZOLE [Concomitant]
     Active Substance: METRONIDAZOLE
  41. TRIHEXYPHENIDYL [Concomitant]
     Active Substance: TRIHEXYPHENIDYL
     Indication: Dystonia
     Route: 050
     Dates: start: 20141010
  42. VALPROATE SODIUM [Concomitant]
     Active Substance: VALPROATE SODIUM
     Indication: Dyskinesia
     Route: 050
     Dates: start: 20141017, end: 20141028
  43. AMBROXOL [Concomitant]
     Active Substance: AMBROXOL
  44. BOTULINUM TOXIN TYPE A [Concomitant]
     Active Substance: BOTULINUM TOXIN TYPE A
  45. BROMHEXINE HYDROCHLORIDE [Concomitant]
     Active Substance: BROMHEXINE HYDROCHLORIDE
     Indication: Productive cough
     Dosage: 50 UNITS
     Route: 050
     Dates: start: 20130416
  46. BROMHEXINE HYDROCHLORIDE [Concomitant]
     Active Substance: BROMHEXINE HYDROCHLORIDE
     Route: 050
  47. BROMHEXINE HYDROCHLORIDE [Concomitant]
     Active Substance: BROMHEXINE HYDROCHLORIDE
     Route: 050
  48. BROMHEXINE HYDROCHLORIDE [Concomitant]
     Active Substance: BROMHEXINE HYDROCHLORIDE
     Route: 050
  49. MAGNESIUM OXIDE [Concomitant]
     Active Substance: MAGNESIUM OXIDE
     Indication: Constipation
     Route: 050
     Dates: start: 20151022
  50. MAGNESIUM OXIDE [Concomitant]
     Active Substance: MAGNESIUM OXIDE
     Route: 050
  51. DIETARY SUPPLEMENT\PROBIOTICS [Concomitant]
     Active Substance: DIETARY SUPPLEMENT\PROBIOTICS
     Indication: Prophylaxis against diarrhoea
     Route: 050
     Dates: start: 20131009, end: 20131016
  52. INFLUENZA VIRUS VACCINE [Concomitant]
     Active Substance: INFLUENZA VIRUS VACCINE
     Indication: Antiviral prophylaxis
     Route: 058
     Dates: start: 20161128, end: 20161128
  53. CERCINE [Concomitant]
     Active Substance: DIAZEPAM
     Indication: Dystonia
     Route: 042
     Dates: start: 20170701, end: 20170701

REACTIONS (21)
  - Pneumonia [Recovered/Resolved]
  - Productive cough [Recovered/Resolved]
  - Pyrexia [Recovered/Resolved]
  - White blood cell count decreased [Recovered/Resolved]
  - Restlessness [Recovered/Resolved]
  - Delirium [Recovered/Resolved]
  - Pneumonia aspiration [Recovered/Resolved]
  - Diarrhoea [Recovered/Resolved with Sequelae]
  - Platelet count decreased [Recovered/Resolved]
  - Drug interaction [Recovered/Resolved]
  - Haematochezia [Recovered/Resolved]
  - Urticaria [Recovered/Resolved]
  - Dystonia [Not Recovered/Not Resolved]
  - Tracheostomy [Unknown]
  - Disease progression [Unknown]
  - Niemann-Pick disease [Unknown]
  - Hypotension [Recovered/Resolved]
  - Bronchitis [Recovered/Resolved]
  - Joint dislocation [Not Recovered/Not Resolved]
  - Radial head dislocation [Not Recovered/Not Resolved]
  - Muscle spasms [Recovering/Resolving]

NARRATIVE: CASE EVENT DATE: 20130228
